FAERS Safety Report 16015998 (Version 1)
Quarter: 2019Q1

REPORT INFORMATION
  Report Type: Spontaneous
  Country: GB (occurrence: GB)
  Receive Date: 20190228
  Receipt Date: 20190228
  Transmission Date: 20190418
  Serious: Yes (Disabling, Other)
  Sender: FDA-Public Use
  Company Number: GB-ACCORD-109295

PATIENT
  Age: 30 Year
  Sex: Female
  Weight: 79.37 kg

DRUGS (2)
  1. MEBEVERINE [Interacting]
     Active Substance: MEBEVERINE
     Indication: IRRITABLE BOWEL SYNDROME
  2. SERTRALINE [Suspect]
     Active Substance: SERTRALINE HYDROCHLORIDE
     Indication: DEPRESSION SUICIDAL
     Route: 048
     Dates: start: 20161212, end: 20180701

REACTIONS (2)
  - Nausea [Unknown]
  - Drug interaction [Unknown]
